FAERS Safety Report 5891841-2 (Version None)
Quarter: 2008Q3

REPORT INFORMATION
  Report Type: 
  Country: None (occurrence: None)
  Receive Date: 20080918
  Receipt Date: 20080902
  Transmission Date: 20090109
  Serious: Yes (Hospitalization, Other)
  Sender: FDA-Public Use
  Company Number: ENT 2008-0147

PATIENT
  Age: 85 Year
  Sex: Male

DRUGS (4)
  1. COMTAN [Suspect]
     Indication: DEMENTIA
     Dosage: STRENGHT 200MG, 4DF/DAY
     Dates: end: 20080401
  2. MADOPAR [Suspect]
     Dosage: 125 (25/100MG) 4 DAILY DOSES
     Dates: end: 20080401
  3. MADOPAR LP 125 [Suspect]
     Dosage: 1 DF/DAY
     Dates: end: 20080401
  4. MADOPAR 62.5 [Suspect]
     Dosage: 50MG/12,5MG
     Dates: end: 20080401

REACTIONS (5)
  - BRADYKINESIA [None]
  - DISORIENTATION [None]
  - DYSARTHRIA [None]
  - FALL [None]
  - HYPERTONIA [None]
